FAERS Safety Report 7238117-9 (Version None)
Quarter: 2011Q1

REPORT INFORMATION
  Report Type: 
  Country: None (occurrence: None)
  Receive Date: 20110121
  Receipt Date: 20110110
  Transmission Date: 20110831
  Serious: Yes (Hospitalization, Other)
  Sender: FDA-Public Use
  Company Number: IN-ELI_LILLY_AND_COMPANY-IN201101003486

PATIENT
  Age: 35 Year
  Sex: Male

DRUGS (5)
  1. OLANZAPINE [Suspect]
     Dosage: 40 MG, DAILY (1/D)
  2. OLANZAPINE [Suspect]
     Dosage: 15 MG, DAILY (1/D)
  3. OLANZAPINE [Suspect]
     Dosage: UNK, UNKNOWN
     Route: 065
     Dates: start: 20090101
  4. OLANZAPINE [Suspect]
     Indication: SCHIZOPHRENIA, PARANOID TYPE
     Dates: start: 20010401
  5. CLOZAPINE [Concomitant]

REACTIONS (6)
  - MANIA [None]
  - DRUG ABUSE [None]
  - HYPOMANIA [None]
  - INCORRECT DOSE ADMINISTERED [None]
  - DRUG DEPENDENCE [None]
  - INCREASED APPETITE [None]
